FAERS Safety Report 25640410 (Version 1)
Quarter: 2025Q3

REPORT INFORMATION
  Report Type: Report from Study
  Country: ZA (occurrence: ZA)
  Receive Date: 20250804
  Receipt Date: 20250804
  Transmission Date: 20251020
  Serious: Yes (Hospitalization)
  Sender: ALEXION PHARMACEUTICALS
  Company Number: ZA-AstraZeneca-CH-00920074A

PATIENT
  Age: 72 Year
  Sex: Female

DRUGS (9)
  1. BUDESONIDE\FORMOTEROL [Suspect]
     Active Substance: BUDESONIDE\FORMOTEROL
     Indication: Asthma
  2. FLUOXETINE [Concomitant]
     Active Substance: FLUOXETINE HYDROCHLORIDE
     Indication: Depression
  3. CETIRIZINE HYDROCHLORIDE [Concomitant]
     Active Substance: CETIRIZINE HYDROCHLORIDE
  4. Topraz [Concomitant]
     Indication: Asthma
  5. LANSOPRAZOLE [Concomitant]
     Active Substance: LANSOPRAZOLE
     Indication: Ulcer
  6. DOMPERIDONE [Concomitant]
     Active Substance: DOMPERIDONE
     Indication: Nausea
  7. DOMPERIDONE [Concomitant]
     Active Substance: DOMPERIDONE
     Indication: Vomiting
  8. ATORVASTATIN [Concomitant]
     Active Substance: ATORVASTATIN
     Indication: Blood cholesterol
  9. OXAZEPAM [Concomitant]
     Active Substance: OXAZEPAM
     Indication: Anxiety

REACTIONS (3)
  - Lumbar puncture [Unknown]
  - Cerebrovascular accident [Unknown]
  - Infection [Unknown]
